FAERS Safety Report 8915824 (Version 2)
Quarter: 2012Q4

REPORT INFORMATION
  Report Type: Report from Study
  Country: US (occurrence: US)
  Receive Date: 20121119
  Receipt Date: 20121127
  Transmission Date: 20130627
  Serious: Yes (Hospitalization)
  Sender: FDA-Public Use
  Company Number: US-US-EMD SERONO, INC.-7173421

PATIENT
  Age: 59 None
  Sex: Female
  Weight: 96 kg

DRUGS (4)
  1. REBIF [Suspect]
     Indication: MULTIPLE SCLEROSIS
     Route: 058
     Dates: start: 20120312
  2. AMPYRA [Concomitant]
     Indication: ATAXIA
  3. VITAMINS [Concomitant]
     Indication: PRODUCT USED FOR UNKNOWN INDICATION
  4. ESTRACE [Concomitant]
     Indication: MENOPAUSE

REACTIONS (11)
  - Diarrhoea [Recovered/Resolved]
  - Nausea [Recovered/Resolved]
  - Intestinal dilatation [Recovered/Resolved]
  - Dehydration [Recovered/Resolved]
  - Cystitis [Recovered/Resolved]
  - Localised infection [Recovering/Resolving]
  - Retching [Recovered/Resolved]
  - Drug hypersensitivity [Not Recovered/Not Resolved]
  - Nasopharyngitis [Unknown]
  - Cough [Unknown]
  - Headache [Recovered/Resolved]
